FAERS Safety Report 5816043-7 (Version None)
Quarter: 2008Q3

REPORT INFORMATION
  Report Type: 
  Country: None (occurrence: None)
  Receive Date: 20080721
  Receipt Date: 20080710
  Transmission Date: 20090109
  Serious: Yes (Death, Life-Threatening)
  Sender: FDA-Public Use
  Company Number: US-ELI_LILLY_AND_COMPANY-US200807001336

PATIENT
  Age: 73 Year
  Sex: Female

DRUGS (6)
  1. QUINIDINE GLUCONATE [Suspect]
     Indication: BABESIOSIS
     Dosage: 400 MG, UNK
     Route: 042
     Dates: start: 20080630
  2. CLINDAMYCIN [Concomitant]
     Route: 042
  3. FENTANYL-100 [Concomitant]
  4. ATIVAN [Concomitant]
  5. LEVOPHED [Concomitant]
     Route: 042
  6. DOPAMINE HCL [Concomitant]

REACTIONS (2)
  - CARDIO-RESPIRATORY ARREST [None]
  - DEATH [None]
